FAERS Safety Report 14480922 (Version 3)
Quarter: 2018Q4

REPORT INFORMATION
  Report Type: Report from Study
  Country: IE (occurrence: IE)
  Receive Date: 20180202
  Receipt Date: 20181212
  Transmission Date: 20190204
  Serious: Yes (Congenital Anomaly, Other)
  Sender: FDA-Public Use
  Company Number: PHHY2017IE198209

PATIENT
  Sex: Female
  Weight: 3.8 kg

DRUGS (1)
  1. GILENYA [Suspect]
     Active Substance: FINGOLIMOD HYDROCHLORIDE
     Indication: FOETAL EXPOSURE DURING PREGNANCY
     Dosage: MATERNAL DOSE: 0.5 MG
     Route: 064

REACTIONS (3)
  - Ankyloglossia congenital [Unknown]
  - Foetal hypokinesia [Unknown]
  - Foetal exposure during pregnancy [Unknown]
